FAERS Safety Report 10046688 (Version 1)
Quarter: 2014Q1

REPORT INFORMATION
  Report Type: Spontaneous
  Country: US (occurrence: US)
  Receive Date: 20140331
  Receipt Date: 20140331
  Transmission Date: 20141002
  Serious: Yes (Life-Threatening)
  Sender: FDA-Public Use
  Company Number: US-ROCHE-1374049

PATIENT
  Age: 38 Year
  Sex: Female
  Weight: 145 kg

DRUGS (1)
  1. XOLAIR [Suspect]
     Indication: PRODUCT USED FOR UNKNOWN INDICATION
     Route: 058
     Dates: start: 20140325, end: 20140325

REACTIONS (2)
  - Anaphylactic shock [Recovered/Resolved]
  - Wheezing [Recovered/Resolved]
